FAERS Safety Report 15600770 (Version 2)
Quarter: 2018Q4

REPORT INFORMATION
  Report Type: Spontaneous
  Country: SK (occurrence: SK)
  Receive Date: 20181109
  Receipt Date: 20181213
  Transmission Date: 20190205
  Serious: Yes (Other)
  Sender: FDA-Public Use
  Company Number: SK-BAUSCH-BL-2018-029879

PATIENT
  Age: 60 Year
  Sex: Female

DRUGS (3)
  1. DEXAMETHASONE. [Suspect]
     Active Substance: DEXAMETHASONE
     Indication: PLASMA CELL MYELOMA
     Dosage: COMBINATION THERAPY, 5 CYCLES WERE ADMINISTERED
     Route: 065
     Dates: start: 20090804, end: 200911
  2. BORTEZOMIB. [Suspect]
     Active Substance: BORTEZOMIB
     Indication: PLASMA CELL MYELOMA
     Dosage: COMBINATION THERAPY, ADMINISTERED 5 CYCLES
     Route: 065
     Dates: start: 20090804, end: 200911
  3. DOXORUBICIN [Suspect]
     Active Substance: DOXORUBICIN
     Indication: PLASMA CELL MYELOMA
     Dosage: COMBINATION THERAPY, ADMINISTERED 5 CYCLES
     Route: 065
     Dates: start: 20090804, end: 200911

REACTIONS (1)
  - Polyneuropathy [Recovering/Resolving]

NARRATIVE: CASE EVENT DATE: 2009
